FAERS Safety Report 5080698-8 (Version None)
Quarter: 2006Q3

REPORT INFORMATION
  Report Type: 
  Country: None (occurrence: None)
  Receive Date: 20060809
  Receipt Date: 20060728
  Transmission Date: 20061208
  Serious: Yes (Life-Threatening, Hospitalization)
  Sender: FDA-Public Use
  Company Number: T200600816

PATIENT
  Age: 54 Year
  Sex: Male

DRUGS (1)
  1. OPTIRAY 160 [Suspect]
     Indication: COMPUTERISED TOMOGRAM
     Dosage: 50 ML, SINGLE, INTRAVENOUS
     Route: 042
     Dates: start: 20060630, end: 20060630

REACTIONS (4)
  - DYSPNOEA [None]
  - NAUSEA [None]
  - RENAL FAILURE ACUTE [None]
  - RESTLESSNESS [None]
